FAERS Safety Report 15619024 (Version 1)
Quarter: 2018Q4

REPORT INFORMATION
  Report Type: Spontaneous
  Country: US (occurrence: US)
  Receive Date: 20181114
  Receipt Date: 20181114
  Transmission Date: 20190205
  Serious: Yes (Disabling)
  Sender: FDA-Public Use
  Company Number: None

PATIENT
  Age: 40 Year
  Sex: Male
  Weight: 72 kg

DRUGS (5)
  1. BOTOX [Suspect]
     Active Substance: ONABOTULINUMTOXINA
     Indication: MYOCLONUS
     Dosage: ?          OTHER FREQUENCY:ONE TIME;?
     Route: 001
     Dates: start: 20170224, end: 20170224
  2. FLONASE [Concomitant]
     Active Substance: FLUTICASONE PROPIONATE
  3. NAPHCON [Concomitant]
     Active Substance: NAPHAZOLINE HYDROCHLORIDE
  4. CLARITIN -D [Concomitant]
  5. BOTOX [Suspect]
     Active Substance: ONABOTULINUMTOXINA
     Indication: MIDDLE EAR DISORDER
     Dosage: ?          OTHER FREQUENCY:ONE TIME;?
     Route: 001
     Dates: start: 20170224, end: 20170224

REACTIONS (6)
  - Post procedural complication [None]
  - Deafness unilateral [None]
  - Scar [None]
  - Tinnitus [None]
  - Tympanic membrane perforation [None]
  - Fibrosis [None]

NARRATIVE: CASE EVENT DATE: 20170224
